FAERS Safety Report 8177328-5 (Version None)
Quarter: 2012Q1

REPORT INFORMATION
  Report Type: 
  Country: None (occurrence: None)
  Receive Date: 20120126
  Receipt Date: 20111109
  Transmission Date: 20120608
  Serious: No
  Sender: FDA-Public Use
  Company Number: PHEH2011US009017

PATIENT
  Sex: Male

DRUGS (9)
  1. AFINITOR [Suspect]
     Dosage: 5.0 MG, ORAL
     Route: 048
     Dates: start: 20111101
  2. TOPAMAX [Concomitant]
  3. ZYRTEC [Concomitant]
  4. PREVACID [Concomitant]
  5. SINGULAIR [Concomitant]
  6. LAMICTAL [Concomitant]
  7. RISPERIDONE [Concomitant]
  8. BUDESONIDE [Concomitant]
  9. KEPPRA [Concomitant]

REACTIONS (2)
  - ORAL PAIN [None]
  - WRONG TECHNIQUE IN DRUG USAGE PROCESS [None]
